FAERS Safety Report 8953558 (Version 1)
Quarter: 2012Q4

REPORT INFORMATION
  Report Type: 
  Country: US (occurrence: US)
  Receive Date: 20121206
  Receipt Date: 20121206
  Transmission Date: 20130627
  Serious: No
  Sender: FDA-Public Use
  Company Number: US-PFIZER INC-2012305651

PATIENT
  Age: 67 Year
  Sex: Female
  Weight: 56.69 kg

DRUGS (2)
  1. ADVIL [Suspect]
     Indication: WRIST PAIN
     Dosage: 400 mg, as needed
     Dates: start: 20121101
  2. ADVIL [Suspect]
     Indication: TOOTH PAIN

REACTIONS (2)
  - Drug ineffective [Unknown]
  - Pain [Unknown]
